FAERS Safety Report 4930659-1 (Version None)
Quarter: 2006Q1

REPORT INFORMATION
  Report Type: 
  Country: None (occurrence: None)
  Receive Date: 20060227
  Receipt Date: 20060214
  Transmission Date: 20060701
  Serious: Yes (Hospitalization)
  Sender: FDA-Public Use
  Company Number: HQWYE449420JAN06

PATIENT
  Age: 76 Year
  Sex: Male
  Weight: 76 kg

DRUGS (14)
  1. MYLOTARG [Suspect]
     Indication: ACUTE MYELOID LEUKAEMIA
     Dosage: A SINGLE 6 MG DOSE, INTRAVENOUS
     Route: 042
     Dates: start: 20051128, end: 20051128
  2. MYLOTARG [Suspect]
     Indication: MYELODYSPLASTIC SYNDROME
     Dosage: A SINGLE 6 MG DOSE, INTRAVENOUS
     Route: 042
     Dates: start: 20051128, end: 20051128
  3. TRISENOX [Suspect]
     Indication: ACUTE MYELOID LEUKAEMIA
     Dosage: 20 MG 2X PER 1 WK, INTRAVENOUS
     Route: 042
     Dates: start: 20051121
  4. TRISENOX [Suspect]
     Indication: MYELODYSPLASTIC SYNDROME
     Dosage: 20 MG 2X PER 1 WK, INTRAVENOUS
     Route: 042
     Dates: start: 20051121
  5. DIFLUCAN [Concomitant]
  6. LOTREL [Concomitant]
  7. ATENOLOL [Concomitant]
  8. SYNTHROID [Concomitant]
  9. PRILOSEC [Concomitant]
  10. PROSCAR [Concomitant]
  11. FLOMAX (MORNIFLUMATE) [Concomitant]
  12. MULTIVITAMINS, PLAIN (MULTIVITAMINS, PLAIN) [Concomitant]
  13. ACYCLOVIR [Concomitant]
  14. LEVAQUIN [Concomitant]

REACTIONS (12)
  - CHEST X-RAY ABNORMAL [None]
  - COUGH [None]
  - DYSPNOEA EXERTIONAL [None]
  - GRANULOMA [None]
  - HAEMOGLOBIN DECREASED [None]
  - LABORATORY TEST ABNORMAL [None]
  - PERICARDIAL EFFUSION [None]
  - PLATELET COUNT DECREASED [None]
  - PNEUMONIA FUNGAL [None]
  - RESPIRATORY RATE INCREASED [None]
  - UPPER RESPIRATORY TRACT CONGESTION [None]
  - WHITE BLOOD CELL COUNT DECREASED [None]
